FAERS Safety Report 17839452 (Version 1)
Quarter: 2020Q2

REPORT INFORMATION
  Report Type: Spontaneous
  Country: JP (occurrence: JP)
  Receive Date: 20200529
  Receipt Date: 20200529
  Transmission Date: 20200714
  Serious: Yes (Hospitalization)
  Sender: FDA-Public Use
  Company Number: JP-PFIZER INC-2019334649

PATIENT
  Age: 119 Day
  Sex: Male
  Weight: .95 kg

DRUGS (6)
  1. AMPHOTERICIN B, LIPOSOME [Suspect]
     Active Substance: AMPHOTERICIN B
     Indication: CNS VENTRICULITIS
     Dosage: 5 MG/KG, UNK (WITHDRAWN AT AGE 220 DAYS)
     Route: 042
  2. VORICONAZOLE. [Suspect]
     Active Substance: VORICONAZOLE
     Indication: CNS VENTRICULITIS
     Dosage: 4 MG/KG, 2X/DAY (FROM AGE 175 DAYS, EVERY 12 HOURS)
     Route: 048
  3. VORICONAZOLE. [Suspect]
     Active Substance: VORICONAZOLE
     Indication: CNS VENTRICULITIS
     Dosage: 9 MG/KG, 2X/DAY (9 MG/KG EVERY 12 HOURS) STARTED AT AGE 91 DAYS
     Route: 042
  4. VORICONAZOLE. [Suspect]
     Active Substance: VORICONAZOLE
     Indication: BRONCHOPULMONARY ASPERGILLOSIS
     Dosage: 4.5 MG/KG, 2X/DAY (EVERY 12 HOURS), WITHDRAWAL OF VRCZ FROM 148 TO 174 DAYS OF LIFE
     Route: 042
  5. VORICONAZOLE. [Suspect]
     Active Substance: VORICONAZOLE
     Indication: BRONCHOPULMONARY ASPERGILLOSIS
     Dosage: 18 MG/KG, 2X/DAY (EVERY 12 HOURS)INCREASED VRCZ DOSAGE)WITHDRAWN AT AGE 222 DAYS
     Route: 048
  6. AMPHOTERICIN B, LIPOSOME [Suspect]
     Active Substance: AMPHOTERICIN B
     Indication: BRONCHOPULMONARY ASPERGILLOSIS

REACTIONS (3)
  - Aspartate aminotransferase increased [Unknown]
  - Hepatic function abnormal [Unknown]
  - Gamma-glutamyltransferase increased [Unknown]
